FAERS Safety Report 8041320 (Version 3)
Quarter: 2013Q3

REPORT INFORMATION
  Report Type: Spontaneous
  Country: US (occurrence: US)
  Receive Date: 20110718
  Receipt Date: 20130911
  Transmission Date: 20140515
  Serious: No
  Sender: FDA-Public Use
  Company Number: US-BIOGENIDEC-2011BI025582

PATIENT
  Age: 36 Year
  Sex: Female

DRUGS (1)
  1. TYSABRI [Suspect]
     Indication: MULTIPLE SCLEROSIS
     Route: 042
     Dates: start: 20110211

REACTIONS (14)
  - Migraine [Not Recovered/Not Resolved]
  - Visual impairment [Recovered/Resolved]
  - Dysphonia [Not Recovered/Not Resolved]
  - Heart rate decreased [Recovered/Resolved]
  - Swelling [Recovered/Resolved]
  - Decreased appetite [Recovered/Resolved]
  - Hypersomnia [Recovered/Resolved]
  - Feeling cold [Not Recovered/Not Resolved]
  - Somnolence [Not Recovered/Not Resolved]
  - Vomiting [Recovered/Resolved]
  - Chest pain [Recovered/Resolved]
  - Hypertension [Recovered/Resolved]
  - Alopecia [Not Recovered/Not Resolved]
  - Multiple sclerosis relapse [Not Recovered/Not Resolved]
